FAERS Safety Report 8995546 (Version 1)
Quarter: 2013Q1

REPORT INFORMATION
  Report Type: Spontaneous
  Country: US (occurrence: US)
  Receive Date: 20130103
  Receipt Date: 20130103
  Transmission Date: 20140127
  Serious: No
  Sender: FDA-Public Use
  Company Number: US-ABBOTT-12P-163-0905320-00

PATIENT
  Sex: Female
  Weight: 91.71 kg

DRUGS (3)
  1. SYNTHROID [Suspect]
     Indication: HYPOTHYROIDISM
     Dates: start: 1999
  2. ZYRTEC [Concomitant]
     Indication: SEASONAL ALLERGY
  3. ADVAIR [Concomitant]
     Indication: ASTHMA

REACTIONS (4)
  - Weight increased [Not Recovered/Not Resolved]
  - Arthralgia [Not Recovered/Not Resolved]
  - Feeling cold [Not Recovered/Not Resolved]
  - Product quality issue [Unknown]
